FAERS Safety Report 24921421 (Version 1)
Quarter: 2025Q1

REPORT INFORMATION
  Report Type: Spontaneous
  Country: NL (occurrence: NL)
  Receive Date: 20250204
  Receipt Date: 20250204
  Transmission Date: 20250409
  Serious: Yes (Life-Threatening, Other)
  Sender: AUROBINDO
  Company Number: NL-AUROBINDO-AUR-APL-2019-068453

PATIENT
  Age: 52 Year
  Sex: Female

DRUGS (9)
  1. MYCOPHENOLIC ACID [Suspect]
     Active Substance: MYCOPHENOLIC ACID
     Indication: Lung transplant
     Route: 065
  2. MYCOPHENOLIC ACID [Suspect]
     Active Substance: MYCOPHENOLIC ACID
     Indication: Immunosuppressant drug therapy
     Route: 065
  3. PREDNISOLONE [Suspect]
     Active Substance: PREDNISOLONE
     Indication: Lung transplant
     Dosage: 7.5 MILLIGRAM, ONCE A DAY
     Route: 065
     Dates: start: 2011
  4. PREDNISOLONE [Suspect]
     Active Substance: PREDNISOLONE
     Indication: Immunosuppressant drug therapy
     Route: 065
  5. SIROLIMUS [Suspect]
     Active Substance: SIROLIMUS
     Indication: Lung transplant
     Dosage: 2 MILLIGRAM, ONCE A DAY
     Route: 065
     Dates: start: 2011
  6. SIROLIMUS [Suspect]
     Active Substance: SIROLIMUS
     Indication: Immunosuppressant drug therapy
     Route: 065
  7. RIBAVIRIN [Concomitant]
     Active Substance: RIBAVIRIN
     Indication: Hepatitis E
     Dosage: 400 MILLIGRAM, TWO TIMES A DAY
     Route: 065
  8. RIBAVIRIN [Concomitant]
     Active Substance: RIBAVIRIN
     Dosage: 200 MILLIGRAM, TWO TIMES A DAY
     Route: 065
  9. SOFOSBUVIR [Concomitant]
     Active Substance: SOFOSBUVIR
     Indication: Hepatitis E
     Route: 065

REACTIONS (4)
  - Hepatitis E [Not Recovered/Not Resolved]
  - Hepatic fibrosis [Unknown]
  - Hepatic cirrhosis [Unknown]
  - Product use in unapproved indication [Unknown]

NARRATIVE: CASE EVENT DATE: 20160901
